FAERS Safety Report 4462322-8 (Version None)
Quarter: 2004Q3

REPORT INFORMATION
  Report Type: 
  Country: None (occurrence: None)
  Receive Date: 20040924
  Receipt Date: 20040910
  Transmission Date: 20050211
  Serious: Yes (Hospitalization)
  Sender: FDA-Public Use
  Company Number: 0104-1859

PATIENT
  Sex: Male

DRUGS (3)
  1. ADVICOR [Suspect]
     Indication: BLOOD TRIGLYCERIDES INCREASED
     Dosage: 1 TABLET(S) QHS PO
     Route: 048
     Dates: start: 20040401, end: 20040907
  2. ADVICOR [Suspect]
     Indication: HIGH DENSITY LIPOPROTEIN DECREASED
     Dosage: 1 TABLET(S) QHS PO
     Route: 048
     Dates: start: 20040401, end: 20040907
  3. MICARDIS [Concomitant]

REACTIONS (4)
  - BACK PAIN [None]
  - MUSCLE CRAMP [None]
  - MUSCULAR WEAKNESS [None]
  - NAUSEA [None]
